FAERS Safety Report 9601250 (Version 1)
Quarter: 2013Q4

REPORT INFORMATION
  Report Type: Spontaneous
  Country: AR (occurrence: AR)
  Receive Date: 20131006
  Receipt Date: 20131006
  Transmission Date: 20140711
  Serious: Yes (Other)
  Sender: FDA-Public Use
  Company Number: AR-MYLANLABS-2013S1021578

PATIENT
  Age: 45 Year
  Sex: Female

DRUGS (5)
  1. AGOMELATINE [Suspect]
     Dosage: 25MG
     Route: 065
  2. QUETIAPINE [Suspect]
     Dosage: 600MG
     Route: 065
  3. LORAZEPAM [Concomitant]
     Dosage: 6MG
     Route: 065
  4. DIAZEPAM [Concomitant]
     Dosage: 60MG
     Route: 065
  5. ZOLPIDEM [Concomitant]
     Dosage: 80MG
     Route: 065

REACTIONS (8)
  - Electrocardiogram QT prolonged [Not Recovered/Not Resolved]
  - Migraine [Unknown]
  - Condition aggravated [Unknown]
  - Agitation [Unknown]
  - Insomnia [Unknown]
  - Dizziness [Unknown]
  - Diarrhoea [Unknown]
  - Sleep disorder [Unknown]
